FAERS Safety Report 7092777-4 (Version None)
Quarter: 2010Q4

REPORT INFORMATION
  Report Type: 
  Country: None (occurrence: None)
  Receive Date: 20101109
  Receipt Date: 20101109
  Transmission Date: 20110411
  Serious: No
  Sender: FDA-Public Use
  Company Number: None

PATIENT

DRUGS (1)
  1. TERBENIFINE 250 MG [Suspect]
     Indication: ONYCHOMYCOSIS
     Dosage: 250MG DAILY ORALLY   LESS THAN WEEK  END OF SEPTEMBER
     Route: 048

REACTIONS (1)
  - PRURITUS [None]
